FAERS Safety Report 14327187 (Version 1)
Quarter: 2017Q4

REPORT INFORMATION
  Report Type: Spontaneous
  Country: US (occurrence: US)
  Receive Date: 20171226
  Receipt Date: 20171226
  Transmission Date: 20180321
  Serious: No
  Sender: FDA-Public Use
  Company Number: None

PATIENT
  Age: 50 Year
  Sex: Female

DRUGS (1)
  1. STELARA [Suspect]
     Active Substance: USTEKINUMAB

REACTIONS (5)
  - Fistula [None]
  - Peripheral swelling [None]
  - Haemorrhage [None]
  - Joint swelling [None]
  - Stoma site ulcer [None]

NARRATIVE: CASE EVENT DATE: 20171226
